FAERS Safety Report 21027838 (Version 1)
Quarter: 2022Q2

REPORT INFORMATION
  Report Type: Spontaneous
  Country: US (occurrence: None)
  Receive Date: 20220630
  Receipt Date: 20220630
  Transmission Date: 20220720
  Serious: No
  Sender: FDA-Public Use
  Company Number: None

PATIENT
  Sex: Male

DRUGS (1)
  1. OTEZLA [Suspect]
     Active Substance: APREMILAST
     Indication: Psoriasis
     Dosage: FREQUENCY : TWICE A DAY;?
     Route: 048
     Dates: start: 20220415

REACTIONS (6)
  - Nausea [None]
  - Diarrhoea [None]
  - Adverse drug reaction [None]
  - Drug intolerance [None]
  - Drug ineffective [None]
  - Product supply issue [None]
